FAERS Safety Report 4673716-X (Version None)
Quarter: 2005Q2

REPORT INFORMATION
  Report Type: 
  Country: None (occurrence: None)
  Receive Date: 20050523
  Receipt Date: 20050510
  Transmission Date: 20051028
  Serious: Yes (Other)
  Sender: FDA-Public Use
  Company Number: 2005076277

PATIENT
  Age: 50 Year
  Sex: Male

DRUGS (2)
  1. DILANTIN [Suspect]
     Indication: CONVULSION
     Dosage: UNKNOWN
     Route: 065
  2. CELEXA [Suspect]
     Indication: ILL-DEFINED DISORDER
     Dosage: UNK, (10 MG, 1 IN 1 D), ORAL
     Route: 048
     Dates: start: 20030101, end: 20030101

REACTIONS (3)
  - CONDITION AGGRAVATED [None]
  - CONVULSION [None]
  - DRUG TOXICITY [None]
